FAERS Safety Report 10680166 (Version 5)
Quarter: 2015Q1

REPORT INFORMATION
  Report Type: Spontaneous
  Country: JP (occurrence: JP)
  Receive Date: 20141229
  Receipt Date: 20150212
  Transmission Date: 20150720
  Serious: Yes (Hospitalization, Other)
  Sender: FDA-Public Use
  Company Number: PHHY2014JP157332

PATIENT
  Age: 58 Year
  Sex: Male

DRUGS (6)
  1. DOXORUBICIN SANDOZ [Suspect]
     Active Substance: DOXORUBICIN
     Indication: DIFFUSE LARGE B-CELL LYMPHOMA
     Dosage: 90 MG, QD
     Route: 041
     Dates: start: 20140411
  2. RITUXAN [Concomitant]
     Active Substance: RITUXIMAB
     Indication: DIFFUSE LARGE B-CELL LYMPHOMA
     Dosage: 700 MG, UNK
     Route: 041
     Dates: start: 20140411, end: 20141001
  3. PREDNISOLONE. [Concomitant]
     Active Substance: PREDNISOLONE
     Indication: DIFFUSE LARGE B-CELL LYMPHOMA
     Route: 065
     Dates: start: 201404, end: 201410
  4. ONCOVIN [Concomitant]
     Active Substance: VINCRISTINE SULFATE
     Indication: DIFFUSE LARGE B-CELL LYMPHOMA
     Dosage: 2 MG, UNK
     Route: 041
     Dates: start: 20140411, end: 20141001
  5. ENDOXAN [Concomitant]
     Active Substance: CYCLOPHOSPHAMIDE
     Indication: DIFFUSE LARGE B-CELL LYMPHOMA
     Dosage: 1400 MG, UNK
     Route: 041
     Dates: start: 20140411, end: 20141001
  6. DOXORUBICIN SANDOZ [Suspect]
     Active Substance: DOXORUBICIN
     Dosage: 85 MG, QD
     Route: 041
     Dates: end: 20141001

REACTIONS (7)
  - Dyspnoea [Recovered/Resolved]
  - General physical health deterioration [Recovered/Resolved]
  - Atrial fibrillation [Recovered/Resolved]
  - Liver disorder [Recovered/Resolved]
  - Renal disorder [Recovered/Resolved]
  - Cardiac failure congestive [Recovered/Resolved]
  - Cardiomyopathy [Recovered/Resolved]

NARRATIVE: CASE EVENT DATE: 201410
